FAERS Safety Report 20632604 (Version 2)
Quarter: 2022Q2

REPORT INFORMATION
  Report Type: Spontaneous
  Country: US (occurrence: None)
  Receive Date: 20220324
  Receipt Date: 20220414
  Transmission Date: 20220721
  Serious: No
  Sender: FDA-Public Use
  Company Number: 2022A077727

PATIENT
  Age: 28557 Day
  Sex: Female
  Weight: 92.5 kg

DRUGS (1)
  1. SYMBICORT [Suspect]
     Active Substance: BUDESONIDE\FORMOTEROL FUMARATE DIHYDRATE
     Indication: Asthma
     Dosage: SYMBICORT 160/4.5 2 PUFF BID
     Route: 055
     Dates: start: 20220115

REACTIONS (4)
  - Throat irritation [Unknown]
  - Dysphonia [Unknown]
  - Cough [Unknown]
  - Device malfunction [Unknown]

NARRATIVE: CASE EVENT DATE: 20220216
